FAERS Safety Report 22262964 (Version 5)
Quarter: 2023Q2

REPORT INFORMATION
  Report Type: Report from Study
  Country: AU (occurrence: None)
  Receive Date: 20230428
  Receipt Date: 20230627
  Transmission Date: 20230721
  Serious: Yes (Hospitalization)
  Sender: FDA-Public Use
  Company Number: AU-ROCHE-3337284

PATIENT
  Age: 64 Year
  Sex: Female

DRUGS (6)
  1. ATEZOLIZUMAB [Suspect]
     Active Substance: ATEZOLIZUMAB
     Indication: Triple negative breast cancer
     Dosage: DAY 1 OF EACH 21 DAY CYCLE, ON 03/APR/2023 LAST DOSE OF ATEZOLIZUMAB HAS TAKEN BY HER.
     Route: 041
     Dates: start: 20220711
  2. BEVACIZUMAB [Suspect]
     Active Substance: BEVACIZUMAB
     Indication: Triple negative breast cancer
     Dosage: ON 03/APR/2023 LAST DOSE OF BEVACIZUMAB WAS GIVEN PRIOR TO SAE
     Route: 042
     Dates: start: 20220711
  3. GEMCITABINE [Suspect]
     Active Substance: GEMCITABINE
     Indication: Triple negative breast cancer
     Dosage: ON 30/JAN/2023 LAST DOSE OF GEMCITABINE WAS GIVEN PRIOR TO SAE
     Route: 065
     Dates: start: 20220711
  4. CARBOPLATIN [Suspect]
     Active Substance: CARBOPLATIN
     Indication: Triple negative breast cancer
     Dosage: ON 30/JAN/2023 LAST DOSE OF CARBOPLATIN WAS GIVEN BEFORE SAE
     Route: 065
     Dates: start: 20220711
  5. TELMISARTAN AND AMLODIPINE [Concomitant]
     Active Substance: AMLODIPINE BESYLATE\TELMISARTAN
     Indication: Hypertension
     Dosage: DOSE/DAY WAS 80/5MG
     Route: 048
     Dates: start: 2019
  6. PANTOPRAZOLE [Concomitant]
     Active Substance: PANTOPRAZOLE
     Route: 048
     Dates: start: 20220801

REACTIONS (2)
  - Cardiac failure [Not Recovered/Not Resolved]
  - Dyspnoea [Unknown]

NARRATIVE: CASE EVENT DATE: 20230421
